FAERS Safety Report 18917136 (Version 2)
Quarter: 2021Q1

REPORT INFORMATION
  Report Type: Report from Study
  Country: None (occurrence: CH)
  Receive Date: 20210219
  Receipt Date: 20210224
  Transmission Date: 20210420
  Serious: Yes (Hospitalization, Other)
  Sender: FDA-Public Use
  Company Number: CH-CLINIGEN GROUP PLC/ CLINIGEN HEALTHCARE LTD-CH-CLGN-21-00065

PATIENT
  Age: 69 Year
  Sex: Male

DRUGS (112)
  1. PROLEUKIN [Suspect]
     Active Substance: ALDESLEUKIN
     Indication: METASTATIC MALIGNANT MELANOMA
     Route: 042
     Dates: start: 20210114, end: 20210114
  2. CYCLOPHOSPHAMIDE. [Suspect]
     Active Substance: CYCLOPHOSPHAMIDE
     Indication: METASTATIC MALIGNANT MELANOMA
     Route: 042
     Dates: start: 20210106, end: 20210107
  3. POTASSIUM CHLORIDE. [Concomitant]
     Active Substance: POTASSIUM CHLORIDE
     Route: 042
     Dates: start: 20210108, end: 20210110
  4. ACETAMINOPHEN. [Concomitant]
     Active Substance: ACETAMINOPHEN
     Indication: BLADDER SPASM
     Route: 048
     Dates: start: 20210116, end: 20210125
  5. LACTATED RINGERS SOLUTION [Concomitant]
     Active Substance: CALCIUM CHLORIDE\POTASSIUM CHLORIDE\SODIUM CHLORIDE\SODIUM LACTATE
     Route: 042
     Dates: start: 20210114, end: 20210116
  6. VALACICLOVIR [Concomitant]
     Active Substance: VALACYCLOVIR HYDROCHLORIDE
     Route: 048
     Dates: start: 20210123, end: 20210125
  7. HEPARIN [Concomitant]
     Active Substance: HEPARIN SODIUM
     Route: 042
     Dates: start: 20210128, end: 20210202
  8. TETRACOSACTIDE [Concomitant]
     Active Substance: COSYNTROPIN
     Indication: ACTH STIMULATION TEST
     Route: 042
     Dates: start: 20210126, end: 20210126
  9. SYNACHTEN [Concomitant]
     Indication: ENDOCRINE TEST
  10. METOCLOPRAMIDE. [Concomitant]
     Active Substance: METOCLOPRAMIDE
     Indication: NAUSEA
     Route: 042
     Dates: start: 20210110, end: 20210111
  11. COLECALCIFEROLE [Concomitant]
     Indication: PRODUCT USED FOR UNKNOWN INDICATION
     Route: 048
     Dates: start: 20210124, end: 20210125
  12. PEGFILGRASTIM [Concomitant]
     Active Substance: PEGFILGRASTIM
     Indication: PRODUCT USED FOR UNKNOWN INDICATION
     Route: 058
     Dates: start: 20210113, end: 20210113
  13. FIDAXOMICIN [Concomitant]
     Active Substance: FIDAXOMICIN
     Indication: PRODUCT USED FOR UNKNOWN INDICATION
     Route: 048
  14. FLUDARABINE [Suspect]
     Active Substance: FLUDARABINE PHOSPHATE
     Indication: METASTATIC MALIGNANT MELANOMA
     Route: 042
     Dates: start: 20210106, end: 20210108
  15. ONDANSETRON [Concomitant]
     Active Substance: ONDANSETRON
     Route: 048
     Dates: start: 20210113, end: 20210114
  16. POTASSIUM CHLORIDE. [Concomitant]
     Active Substance: POTASSIUM CHLORIDE
     Indication: METABOLIC DISORDER PROPHYLAXIS
     Route: 048
     Dates: start: 20210108, end: 20210109
  17. LACTATED RINGERS SOLUTION [Concomitant]
     Active Substance: CALCIUM CHLORIDE\POTASSIUM CHLORIDE\SODIUM CHLORIDE\SODIUM LACTATE
     Indication: HYPOTENSION
     Route: 042
     Dates: start: 20210109, end: 20210111
  18. MEROPENEM. [Concomitant]
     Active Substance: MEROPENEM
     Indication: SEPSIS
     Route: 042
     Dates: start: 20210115, end: 20210115
  19. ESOMEPRAZOLE. [Concomitant]
     Active Substance: ESOMEPRAZOLE MAGNESIUM
     Route: 048
     Dates: start: 20210128
  20. VASELINE PURE [Concomitant]
     Active Substance: PETROLATUM
     Indication: RASH MACULO-PAPULAR
     Route: 061
     Dates: start: 20210122, end: 20210125
  21. VALACICLOVIR [Concomitant]
     Active Substance: VALACYCLOVIR HYDROCHLORIDE
     Indication: INFECTION PROPHYLAXIS
     Route: 048
     Dates: start: 20210112, end: 20210114
  22. GLUCOSALINE [Concomitant]
     Indication: PROPHYLAXIS AGAINST DEHYDRATION
     Route: 042
     Dates: start: 20210126, end: 20210127
  23. METHYLPREDNISOLONE. [Concomitant]
     Active Substance: METHYLPREDNISOLONE
     Route: 042
     Dates: start: 20210130, end: 20210131
  24. MESNA. [Concomitant]
     Active Substance: MESNA
     Route: 042
     Dates: start: 20210109, end: 20210109
  25. IBUPROFEN. [Concomitant]
     Active Substance: IBUPROFEN
     Indication: SEPSIS
     Route: 048
     Dates: start: 20210108, end: 20210108
  26. ONDANSETRON [Concomitant]
     Active Substance: ONDANSETRON
     Route: 048
     Dates: start: 20210122, end: 20210124
  27. ONDANSETRON [Concomitant]
     Active Substance: ONDANSETRON
     Route: 042
     Dates: start: 20210128, end: 20210128
  28. POTASSIUM CHLORIDE. [Concomitant]
     Active Substance: POTASSIUM CHLORIDE
     Route: 042
     Dates: start: 20210128, end: 20210128
  29. AMIODARONE [Concomitant]
     Active Substance: AMIODARONE
     Route: 048
     Dates: start: 20210113, end: 20210123
  30. MEROPENEM. [Concomitant]
     Active Substance: MEROPENEM
     Route: 042
     Dates: start: 20210126, end: 20210128
  31. CASPOFUNGINE [Concomitant]
     Active Substance: CASPOFUNGIN
     Indication: FUNGAEMIA
     Route: 042
     Dates: start: 20210116, end: 20210116
  32. LEVOFLOXACINE [Concomitant]
     Active Substance: LEVOFLOXACIN
     Route: 048
     Dates: start: 20210115, end: 20210118
  33. LEVOTHYROXIN [Concomitant]
     Active Substance: LEVOTHYROXINE
     Indication: LYMPHOCYTIC HYPOPHYSITIS
     Route: 048
     Dates: start: 20200601, end: 20210112
  34. TROSPIUM [Concomitant]
     Active Substance: TROSPIUM
     Indication: BLADDER SPASM
     Route: 048
     Dates: start: 20210117, end: 20210119
  35. FUROSEMIDE. [Concomitant]
     Active Substance: FUROSEMIDE
     Route: 042
     Dates: start: 20210131
  36. METHYLPREDNISOLONE. [Concomitant]
     Active Substance: METHYLPREDNISOLONE
     Indication: PRODUCT USED FOR UNKNOWN INDICATION
     Route: 042
     Dates: start: 20210126, end: 20210128
  37. METHYLPREDNISOLONE. [Concomitant]
     Active Substance: METHYLPREDNISOLONE
     Route: 042
     Dates: start: 20210201, end: 20210201
  38. OLANZAPINE. [Concomitant]
     Active Substance: OLANZAPINE
     Indication: PROPHYLAXIS OF NAUSEA AND VOMITING
  39. CLEMASTINE [Concomitant]
     Active Substance: CLEMASTINE
     Indication: PREMEDICATION
     Route: 048
     Dates: start: 20210112, end: 20210114
  40. CLOMETIAZOLE [Concomitant]
     Active Substance: CLOMETHIAZOLE
     Route: 048
     Dates: start: 20210112, end: 20210112
  41. TORASEMIDE [Concomitant]
     Active Substance: TORSEMIDE
     Indication: WEIGHT INCREASED
     Route: 048
     Dates: start: 20210111, end: 20210112
  42. TORASEMIDE [Concomitant]
     Active Substance: TORSEMIDE
     Indication: CAPILLARY LEAK SYNDROME
     Route: 048
     Dates: start: 20210118, end: 20210121
  43. NORADRENALIN [Concomitant]
     Active Substance: NOREPINEPHRINE\NOREPINEPHRINE BITARTRATE
     Indication: HYPOTENSION
     Route: 042
     Dates: start: 20210126, end: 20210127
  44. ESOMEPRAZOLE. [Concomitant]
     Active Substance: ESOMEPRAZOLE MAGNESIUM
     Indication: GASTRIC ULCER
     Route: 042
     Dates: start: 20210115, end: 20210115
  45. PARENTERAL NUTRITION [Concomitant]
     Active Substance: AMINO ACIDS\DEXTROSE\ELECTROLYTES NOS
     Indication: PRODUCT USED FOR UNKNOWN INDICATION
     Route: 042
     Dates: start: 20210119, end: 20210123
  46. OXYCODONE [Concomitant]
     Active Substance: OXYCODONE
     Indication: BACK PAIN
     Route: 048
     Dates: start: 20210115, end: 20210115
  47. HEPARIN [Concomitant]
     Active Substance: HEPARIN SODIUM
     Indication: THROMBOSIS PROPHYLAXIS
     Route: 042
     Dates: start: 20210126, end: 20210128
  48. FUROSEMIDE. [Concomitant]
     Active Substance: FUROSEMIDE
     Route: 042
     Dates: start: 20210126, end: 20210130
  49. ENSURE + [Concomitant]
     Indication: DECREASED APPETITE
     Route: 048
     Dates: start: 20210127, end: 20210127
  50. MESNA. [Concomitant]
     Active Substance: MESNA
     Indication: CYSTITIS NONINFECTIVE
     Route: 042
     Dates: start: 20210109, end: 20210112
  51. FOSAPREPITANT [Concomitant]
     Active Substance: FOSAPREPITANT
     Indication: CHEMOTHERAPY SIDE EFFECT PROPHYLAXIS
     Route: 042
     Dates: start: 20210106, end: 20210106
  52. GLUCOSE [Concomitant]
     Active Substance: DEXTROSE
     Indication: RENAL FAILURE
     Route: 042
     Dates: start: 20210110, end: 20210110
  53. FRESH FROZEN PLASMA [Concomitant]
     Active Substance: HUMAN PLASMA
     Indication: PRODUCT USED FOR UNKNOWN INDICATION
     Route: 042
     Dates: start: 20210204, end: 20210204
  54. ACETAMINOPHEN. [Concomitant]
     Active Substance: ACETAMINOPHEN
     Indication: NEURALGIA
     Route: 048
     Dates: start: 20210101
  55. AMIODARONE [Concomitant]
     Active Substance: AMIODARONE
     Indication: ATRIAL FIBRILLATION
     Route: 042
     Dates: start: 20210109, end: 20210111
  56. TORASEMIDE [Concomitant]
     Active Substance: TORSEMIDE
     Route: 048
     Dates: start: 20210121, end: 20210123
  57. LEVOFLOXACINE [Concomitant]
     Active Substance: LEVOFLOXACIN
     Route: 042
     Dates: start: 20210113, end: 20210115
  58. ESOMEPRAZOLE. [Concomitant]
     Active Substance: ESOMEPRAZOLE MAGNESIUM
     Route: 048
     Dates: start: 20210117, end: 20210125
  59. ESOMEPRAZOLE. [Concomitant]
     Active Substance: ESOMEPRAZOLE MAGNESIUM
     Route: 042
     Dates: start: 20210125, end: 20210128
  60. LORAZEPAM. [Concomitant]
     Active Substance: LORAZEPAM
     Indication: ANXIETY
     Route: 048
     Dates: start: 20210122, end: 20210122
  61. OXYCODONE [Concomitant]
     Active Substance: OXYCODONE
     Indication: BLADDER SPASM
     Route: 048
     Dates: start: 20210115, end: 20210116
  62. DIGOXINE [Concomitant]
     Active Substance: DIGOXIN
     Indication: ATRIAL FIBRILLATION
     Route: 042
     Dates: start: 20210126, end: 20210126
  63. CEFTRIAXONE. [Concomitant]
     Active Substance: CEFTRIAXONE
     Indication: SEPSIS
     Route: 042
     Dates: start: 20210108, end: 20210108
  64. METRONIDAZOLE. [Concomitant]
     Active Substance: METRONIDAZOLE
     Indication: SEPSIS
     Route: 042
     Dates: start: 20210108, end: 20210109
  65. PETHIDINE [Concomitant]
     Active Substance: MEPERIDINE
     Indication: CHILLS
     Route: 042
     Dates: start: 20210113, end: 20210114
  66. CLOMETIAZOLE [Concomitant]
     Active Substance: CLOMETHIAZOLE
     Indication: PRODUCT USED FOR UNKNOWN INDICATION
     Route: 048
     Dates: start: 20210112, end: 20210112
  67. BACTRIM [Concomitant]
     Active Substance: SULFAMETHOXAZOLE\TRIMETHOPRIM
     Indication: PRODUCT USED FOR UNKNOWN INDICATION
     Route: 048
  68. METOPROLOL. [Concomitant]
     Active Substance: METOPROLOL
     Indication: PRODUCT USED FOR UNKNOWN INDICATION
     Dates: start: 20210204, end: 20210204
  69. ONDANSETRON [Concomitant]
     Active Substance: ONDANSETRON
     Indication: PROPHYLAXIS OF NAUSEA AND VOMITING
     Route: 048
     Dates: start: 20210120, end: 20210120
  70. ACETAMINOPHEN. [Concomitant]
     Active Substance: ACETAMINOPHEN
     Indication: BACK PAIN
     Route: 048
     Dates: start: 20210109, end: 20210111
  71. ACETAMINOPHEN. [Concomitant]
     Active Substance: ACETAMINOPHEN
     Route: 042
     Dates: start: 20210125, end: 20210127
  72. LACTATED RINGERS SOLUTION [Concomitant]
     Active Substance: CALCIUM CHLORIDE\POTASSIUM CHLORIDE\SODIUM CHLORIDE\SODIUM LACTATE
     Route: 042
     Dates: start: 20210111, end: 20210111
  73. LACTATED RINGERS SOLUTION [Concomitant]
     Active Substance: CALCIUM CHLORIDE\POTASSIUM CHLORIDE\SODIUM CHLORIDE\SODIUM LACTATE
     Route: 042
     Dates: start: 20210126, end: 20210126
  74. LEVOFLOXACINE [Concomitant]
     Active Substance: LEVOFLOXACIN
     Indication: PRODUCT USED FOR UNKNOWN INDICATION
     Route: 042
     Dates: start: 20210113, end: 20210113
  75. NORADRENALIN [Concomitant]
     Active Substance: NOREPINEPHRINE\NOREPINEPHRINE BITARTRATE
     Indication: ATRIAL FIBRILLATION
     Route: 042
     Dates: start: 20210114, end: 20210115
  76. LEVOTHYROXIN [Concomitant]
     Active Substance: LEVOTHYROXINE
     Route: 048
     Dates: start: 20210119, end: 20210126
  77. TROSPIUM [Concomitant]
     Active Substance: TROSPIUM
     Indication: HAEMATURIA
     Route: 048
     Dates: start: 20210114, end: 20210117
  78. VALACICLOVIR [Concomitant]
     Active Substance: VALACYCLOVIR HYDROCHLORIDE
     Route: 048
     Dates: start: 20210202
  79. HEPARIN [Concomitant]
     Active Substance: HEPARIN SODIUM
     Route: 042
     Dates: start: 20210202
  80. PALONOSETRON. [Concomitant]
     Active Substance: PALONOSETRON HYDROCHLORIDE
     Indication: CHEMOTHERAPY SIDE EFFECT PROPHYLAXIS
     Dosage: ONGOING
  81. MESNA. [Concomitant]
     Active Substance: MESNA
     Route: 042
     Dates: start: 20210106, end: 20210107
  82. PIPERACILLIN AND TAZOBACTAM [Concomitant]
     Active Substance: PIPERACILLIN SODIUM\TAZOBACTAM SODIUM
     Indication: SEPSIS
     Route: 048
     Dates: start: 20210109, end: 20210114
  83. TOCILIZUMAB. [Concomitant]
     Active Substance: TOCILIZUMAB
     Indication: PRODUCT USED FOR UNKNOWN INDICATION
     Route: 042
     Dates: start: 20210129, end: 20210129
  84. VANCOMYCINE [Concomitant]
     Active Substance: VANCOMYCIN
     Indication: PRODUCT USED FOR UNKNOWN INDICATION
     Route: 042
     Dates: start: 20210115, end: 20210115
  85. METHYLTHIONINIUM CHLORIDE [Concomitant]
     Active Substance: METHYLENE BLUE
     Indication: PRODUCT USED FOR UNKNOWN INDICATION
     Route: 042
     Dates: start: 20210113, end: 20210114
  86. ATOVAQUONE. [Concomitant]
     Active Substance: ATOVAQUONE
     Indication: PRODUCT USED FOR UNKNOWN INDICATION
     Route: 048
  87. TIL [TUMOR INFILTRATING LYMPHOCYTES] [Suspect]
     Active Substance: LYMPHOCYTES
     Indication: METASTATIC MALIGNANT MELANOMA
     Route: 042
     Dates: start: 20210113, end: 20210113
  88. AMIODARONE [Concomitant]
     Active Substance: AMIODARONE
     Route: 048
     Dates: start: 20210111, end: 20210113
  89. AMIODARONE [Concomitant]
     Active Substance: AMIODARONE
     Route: 042
     Dates: start: 20210119, end: 20210120
  90. AMIODARONE [Concomitant]
     Active Substance: AMIODARONE
     Route: 042
     Dates: start: 20210124, end: 20210124
  91. MEROPENEM. [Concomitant]
     Active Substance: MEROPENEM
     Route: 042
     Dates: start: 20210115, end: 20210119
  92. CASPOFUNGINE [Concomitant]
     Active Substance: CASPOFUNGIN
     Route: 042
     Dates: start: 20210116, end: 20210129
  93. VASELINE PURE [Concomitant]
     Active Substance: PETROLATUM
     Route: 061
     Dates: start: 20210120, end: 20210122
  94. VALACICLOVIR [Concomitant]
     Active Substance: VALACYCLOVIR HYDROCHLORIDE
     Route: 048
     Dates: start: 20210116, end: 20210123
  95. COLECALCIFEROLE [Concomitant]
     Indication: PRODUCT USED FOR UNKNOWN INDICATION
     Route: 048
     Dates: start: 20210124, end: 20210125
  96. HEPARIN [Concomitant]
     Active Substance: HEPARIN SODIUM
     Route: 042
     Dates: start: 20210202, end: 20210202
  97. GLUCOSALINE [Concomitant]
     Route: 042
     Dates: start: 20210126, end: 20210128
  98. INSULIN [Concomitant]
     Active Substance: INSULIN NOS
     Indication: HYPERGLYCAEMIA
     Route: 042
     Dates: start: 20210126, end: 20210128
  99. DIGOXINE [Concomitant]
     Active Substance: DIGOXIN
     Route: 042
     Dates: start: 20210126, end: 20210126
  100. PALONOSETRON. [Concomitant]
     Active Substance: PALONOSETRON HYDROCHLORIDE
     Route: 042
     Dates: start: 20210106, end: 20210106
  101. MAGNESIUM SULFATE. [Concomitant]
     Active Substance: MAGNESIUM SULFATE
     Indication: ATRIAL FIBRILLATION
     Route: 042
     Dates: start: 20210109, end: 20210109
  102. LOPERAMIDE [Concomitant]
     Active Substance: LOPERAMIDE
     Indication: DIARRHOEA
     Route: 048
     Dates: start: 20210109, end: 20210109
  103. APIXABAN [Concomitant]
     Active Substance: APIXABAN
     Indication: PRODUCT USED FOR UNKNOWN INDICATION
     Route: 048
     Dates: start: 20210205
  104. LEVOTHYROXIN [Concomitant]
     Active Substance: LEVOTHYROXINE
     Route: 048
     Dates: start: 20210112, end: 20210119
  105. CEFEPIME [Concomitant]
     Active Substance: CEFEPIME HYDROCHLORIDE
     Indication: SEPSIS
     Route: 042
     Dates: start: 20210120, end: 20210125
  106. TROSPIUM [Concomitant]
     Active Substance: TROSPIUM
     Route: 048
     Dates: start: 20210122, end: 20210125
  107. OXYCODONE [Concomitant]
     Active Substance: OXYCODONE
     Route: 048
     Dates: start: 20210116, end: 20210124
  108. OXYCODONE [Concomitant]
     Active Substance: OXYCODONE
     Route: 048
     Dates: start: 20210124, end: 20210125
  109. FUROSEMIDE. [Concomitant]
     Active Substance: FUROSEMIDE
     Indication: CAPILLARY LEAK SYNDROME
     Route: 042
     Dates: start: 20210124, end: 20210124
  110. METHYLPREDNISOLONE. [Concomitant]
     Active Substance: METHYLPREDNISOLONE
     Route: 042
     Dates: start: 20210129, end: 20210129
  111. GLUCOSALINE [Concomitant]
     Indication: PRODUCT USED FOR UNKNOWN INDICATION
     Route: 042
     Dates: start: 20210126, end: 20210127
  112. VALGANCICLOVIR. [Concomitant]
     Active Substance: VALGANCICLOVIR
     Indication: PRODUCT USED FOR UNKNOWN INDICATION
     Route: 048

REACTIONS (1)
  - Cytokine release syndrome [Not Recovered/Not Resolved]

NARRATIVE: CASE EVENT DATE: 20210125
